FAERS Safety Report 23353869 (Version 3)
Quarter: 2024Q1

REPORT INFORMATION
  Report Type: Spontaneous
  Country: US (occurrence: US)
  Receive Date: 20240101
  Receipt Date: 20240126
  Transmission Date: 20240410
  Serious: No
  Sender: FDA-Public Use
  Company Number: US-AMGEN-USASP2023231685

PATIENT
  Age: 31 Year
  Sex: Female
  Weight: 99.2 kg

DRUGS (2)
  1. NEULASTA [Suspect]
     Active Substance: PEGFILGRASTIM
     Indication: Triple positive breast cancer
     Dosage: UNK
     Route: 065
     Dates: start: 20231114
  2. NEULASTA [Suspect]
     Active Substance: PEGFILGRASTIM
     Dosage: UNK
     Route: 065

REACTIONS (1)
  - Unintentional medical device removal [Recovered/Resolved]

NARRATIVE: CASE EVENT DATE: 20231226
